FAERS Safety Report 4910851-2 (Version None)
Quarter: 2006Q1

REPORT INFORMATION
  Report Type: 
  Country: None (occurrence: None)
  Receive Date: 20060214
  Receipt Date: 20060206
  Transmission Date: 20060701
  Serious: Yes (Other)
  Sender: FDA-Public Use
  Company Number: 2006JP000175

PATIENT
  Age: 36 Year
  Sex: Female
  Weight: 47.6 kg

DRUGS (7)
  1. CEFAZOLIN SODIUM                   09 [Suspect]
     Indication: MASTITIS
     Dosage: 2G PER DAY
     Route: 042
     Dates: start: 20060125, end: 20060125
  2. LACTATED RINGER'S [Concomitant]
     Route: 042
     Dates: start: 20060125
  3. BOSMIN [Concomitant]
     Route: 030
     Dates: start: 20060125
  4. OXYGEN [Concomitant]
     Route: 065
     Dates: start: 20060125
  5. SALINE SOLUTION [Concomitant]
     Route: 065
     Dates: start: 20060125
  6. SOLU-MEDROL [Concomitant]
     Dosage: 500MG UNKNOWN
     Route: 065
     Dates: start: 20060125
  7. FLOMAX [Concomitant]
     Dates: start: 20050215

REACTIONS (7)
  - ANAPHYLACTIC SHOCK [None]
  - BLOOD PRESSURE DECREASED [None]
  - DYSPNOEA [None]
  - FEELING COLD [None]
  - HYPOAESTHESIA [None]
  - PALLOR [None]
  - RESPIRATORY RATE INCREASED [None]
